FAERS Safety Report 21627917 (Version 13)
Quarter: 2024Q2

REPORT INFORMATION
  Report Type: Report from Study
  Country: CA (occurrence: CA)
  Receive Date: 20221122
  Receipt Date: 20240516
  Transmission Date: 20240716
  Serious: Yes (Hospitalization, Other)
  Sender: FDA-Public Use
  Company Number: CA-UCBSA-2022066338

PATIENT
  Sex: Female

DRUGS (2)
  1. CERTOLIZUMAB PEGOL [Suspect]
     Active Substance: CERTOLIZUMAB PEGOL
     Indication: Rheumatoid arthritis
     Dosage: 400 MILLIGRAM, EV 2 WEEKS(QOW) *3
     Route: 058
     Dates: start: 20161206
  2. CERTOLIZUMAB PEGOL [Suspect]
     Active Substance: CERTOLIZUMAB PEGOL
     Dosage: 200 MILLIGRAM, EV 2 WEEKS(QOW)
     Route: 058

REACTIONS (24)
  - Urinary tract infection [Unknown]
  - Kidney infection [Unknown]
  - Clostridium difficile infection [Unknown]
  - Cardiac arrest [Unknown]
  - Sepsis [Unknown]
  - Thrombosis [Unknown]
  - Mechanical ventilation [Unknown]
  - Myocardial infarction [Unknown]
  - Pericardial effusion [Unknown]
  - Pleural effusion [Unknown]
  - Decubitus ulcer [Unknown]
  - Ostomy bag placement [Unknown]
  - Transfusion [Unknown]
  - General physical health deterioration [Unknown]
  - Wheelchair user [Unknown]
  - Spinal operation [Unknown]
  - Loss of personal independence in daily activities [Unknown]
  - Fatigue [Unknown]
  - Abdominal discomfort [Unknown]
  - Diarrhoea [Recovering/Resolving]
  - Illness [Unknown]
  - Pain in extremity [Unknown]
  - Therapy interrupted [Unknown]
  - Intentional dose omission [Unknown]

NARRATIVE: CASE EVENT DATE: 20200101
